FAERS Safety Report 8819353 (Version 1)
Quarter: 2012Q4

REPORT INFORMATION
  Report Type: Spontaneous
  Country: TR (occurrence: None)
  Receive Date: 20121003
  Receipt Date: 20121003
  Transmission Date: 20130627
  Serious: Yes (Hospitalization, Other)
  Sender: FDA-Public Use
  Company Number: FK201202821

PATIENT
  Age: 34 Year
  Sex: Female

DRUGS (2)
  1. SUMATRIPTAN [Suspect]
     Route: 045
  2. METOCLOPRAMIDE [Suspect]
     Route: 030

REACTIONS (1)
  - Brain stem infarction [None]
